FAERS Safety Report 25762420 (Version 4)
Quarter: 2025Q4

REPORT INFORMATION
  Report Type: Report from Study
  Country: EU (occurrence: EU)
  Receive Date: 20250904
  Receipt Date: 20251015
  Transmission Date: 20260117
  Serious: Yes (Hospitalization)
  Sender: IPSEN BIOPHARMACEUTICALS, INC.
  Company Number: EU-SERVIER-S25011883

PATIENT
  Age: 55 Year
  Sex: Female
  Weight: 63 kg

DRUGS (11)
  1. ONIVYDE [Suspect]
     Active Substance: IRINOTECAN HYDROCHLORIDE
     Indication: Pancreatic carcinoma metastatic
     Dosage: 50  MG/M2, QD, D1 OF 14-DAY CYCLE
     Dates: start: 20250729, end: 20250812
  2. ONIVYDE [Suspect]
     Active Substance: IRINOTECAN HYDROCHLORIDE
     Dosage: 50  MG/M2, QD, D1 OF 14-DAY CYCLE
     Dates: start: 20250825
  3. FLUOROURACIL [Suspect]
     Active Substance: FLUOROURACIL
     Indication: Pancreatic carcinoma metastatic
     Dosage: 2400 MG/M2, QD, D1-D2 OF 14-DAY CYCLE
     Dates: start: 20250729, end: 20250812
  4. FLUOROURACIL [Suspect]
     Active Substance: FLUOROURACIL
     Dosage: AT 75 %
  5. LEUCOVORIN [Suspect]
     Active Substance: LEUCOVORIN\LEUCOVORIN CALCIUM
     Indication: Pancreatic carcinoma metastatic
     Dosage: 400 MG/M2, QD, D1 OF 14 -DAY CYCLE
     Dates: start: 20250729, end: 20250812
  6. LEUCOVORIN [Suspect]
     Active Substance: LEUCOVORIN\LEUCOVORIN CALCIUM
     Dosage: AT 75 %
  7. OXALIPLATIN [Suspect]
     Active Substance: OXALIPLATIN
     Indication: Pancreatic carcinoma metastatic
     Dosage: 60 MG/M2, QD, D1 OF 14-DAY CYCLE
     Dates: start: 20250729, end: 20250812
  8. OXALIPLATIN [Suspect]
     Active Substance: OXALIPLATIN
     Dosage: AT 75 %
  9. METAMIZOLE [Concomitant]
     Active Substance: METAMIZOLE
     Indication: Pain prophylaxis
     Dosage: 500 MG, PRN
  10. LOPERAMIDE [Concomitant]
     Active Substance: LOPERAMIDE
     Indication: Prophylaxis against diarrhoea
     Dosage: 2 MG, PRN
  11. METOCLOPRAMIDE [Concomitant]
     Active Substance: METOCLOPRAMIDE
     Indication: Gastrointestinal disorder
     Dosage: 10 MG, PRN

REACTIONS (3)
  - Ileus paralytic [Recovered/Resolved with Sequelae]
  - Diarrhoea [Recovered/Resolved with Sequelae]
  - Hypersensitivity [Recovered/Resolved]

NARRATIVE: CASE EVENT DATE: 20250808
